FAERS Safety Report 24413446 (Version 13)
Quarter: 2025Q4

REPORT INFORMATION
  Report Type: Spontaneous
  Country: US (occurrence: US)
  Receive Date: 20241008
  Receipt Date: 20251013
  Transmission Date: 20260118
  Serious: No
  Sender: KARYOPHARM THERAPEUTICS
  Company Number: US-KARYOPHARM-2024KPT001634

PATIENT

DRUGS (8)
  1. XPOVIO [Suspect]
     Active Substance: SELINEXOR
     Indication: Plasma cell myeloma in remission
     Dosage: 40 MG WEEKLY ON DAYS 1 8 15 AND 22
     Route: 048
     Dates: start: 20240919
  2. XPOVIO [Suspect]
     Active Substance: SELINEXOR
  3. ASPIRIN [Concomitant]
     Active Substance: ASPIRIN
  4. LORATADINE [Concomitant]
     Active Substance: LORATADINE
  5. OLANZAPINE [Concomitant]
     Active Substance: OLANZAPINE
  6. PROCHLORPERAZINE [Concomitant]
     Active Substance: PROCHLORPERAZINE
  7. OMEPRAZOLE [Concomitant]
     Active Substance: OMEPRAZOLE
  8. KYPROLIS [Concomitant]
     Active Substance: CARFILZOMIB

REACTIONS (14)
  - Plasma cell myeloma [Unknown]
  - Full blood count abnormal [Unknown]
  - White blood cell count abnormal [Unknown]
  - Malaise [Unknown]
  - Feeling abnormal [Unknown]
  - Abdominal discomfort [Unknown]
  - Blood potassium decreased [Unknown]
  - Headache [Unknown]
  - Nausea [Not Recovered/Not Resolved]
  - Constipation [Recovering/Resolving]
  - Fatigue [Not Recovered/Not Resolved]
  - Product dose omission issue [Unknown]
  - Inappropriate schedule of product administration [Unknown]
  - Drug ineffective [Unknown]

NARRATIVE: CASE EVENT DATE: 20240101
